FAERS Safety Report 24154065 (Version 1)
Quarter: 2024Q3

REPORT INFORMATION
  Report Type: Spontaneous
  Country: US (occurrence: US)
  Receive Date: 20240730
  Receipt Date: 20240730
  Transmission Date: 20241016
  Serious: Yes (Other)
  Sender: BAUSCH AND LOMB
  Company Number: US-BAUSCH-BL-2024-011537

PATIENT
  Sex: Female

DRUGS (8)
  1. FLUCYTOSINE [Suspect]
     Active Substance: FLUCYTOSINE
     Indication: Systemic candida
     Route: 065
     Dates: start: 202406, end: 202406
  2. AMPHOTERICIN B [Suspect]
     Active Substance: AMPHOTERICIN B
     Indication: Systemic candida
     Route: 065
     Dates: start: 202406, end: 202406
  3. ITRACONAZOLE [Concomitant]
     Active Substance: ITRACONAZOLE
     Indication: Systemic candida
     Dates: start: 202406, end: 202406
  4. ANIDULAFUNGIN [Concomitant]
     Active Substance: ANIDULAFUNGIN
     Indication: Systemic candida
     Dates: start: 202406
  5. MICAFUNGIN [Concomitant]
     Active Substance: MICAFUNGIN SODIUM
     Indication: Systemic candida
     Dates: start: 202406
  6. POSACONAZOLE [Concomitant]
     Active Substance: POSACONAZOLE
     Indication: Systemic candida
     Dates: start: 202406
  7. VORICONAZOLE [Concomitant]
     Active Substance: VORICONAZOLE
     Indication: Systemic candida
     Dates: start: 202406
  8. FLUCONAZOLE [Concomitant]
     Active Substance: FLUCONAZOLE
     Indication: Systemic candida
     Dates: start: 202406

REACTIONS (1)
  - Renal impairment [Unknown]

NARRATIVE: CASE EVENT DATE: 20240601
